FAERS Safety Report 4590941-7 (Version None)
Quarter: 2005Q1

REPORT INFORMATION
  Report Type: 
  Country: None (occurrence: None)
  Receive Date: 20050222
  Receipt Date: 20050222
  Transmission Date: 20050727
  Serious: Yes (Other)
  Sender: FDA-Public Use
  Company Number: None

PATIENT
  Sex: Female
  Weight: 107 kg

DRUGS (8)
  1. CYCLOPHOSPHAMIDE [Suspect]
     Indication: BREAST CANCER
     Dosage: Q 14 DAYS X 4 CYCLES
     Dates: start: 20050209, end: 20050209
  2. CYCLOPHOSPHAMIDE [Suspect]
     Indication: BREAST CANCER
     Dosage: Q 14 DAYS X 4 CYCLES
     Dates: start: 20041215
  3. DOXORUBICIN [Suspect]
  4. COMPAZINE [Concomitant]
  5. LORTAB [Concomitant]
  6. NEXIUM [Concomitant]
  7. ZOFRAN [Concomitant]
  8. PACLITAXEL [Suspect]

REACTIONS (2)
  - ABSCESS [None]
  - INFECTION [None]
